FAERS Safety Report 9530176 (Version 1)
Quarter: 2013Q3

REPORT INFORMATION
  Report Type: Spontaneous
  Country: SE (occurrence: SE)
  Receive Date: 20130917
  Receipt Date: 20130917
  Transmission Date: 20140515
  Serious: Yes (Other)
  Sender: FDA-Public Use
  Company Number: PHHY2013SE099183

PATIENT
  Age: 56 Year
  Sex: Female

DRUGS (1)
  1. TRAMADOL HEXAL [Suspect]

REACTIONS (1)
  - Nephrolithiasis [Unknown]
